FAERS Safety Report 9728683 (Version 3)
Quarter: 2014Q1

REPORT INFORMATION
  Report Type: Spontaneous
  Country: US (occurrence: US)
  Receive Date: 20131204
  Receipt Date: 20140124
  Transmission Date: 20141002
  Serious: No
  Sender: FDA-Public Use
  Company Number: US-PFIZER INC-2013344662

PATIENT
  Age: 8 Year
  Sex: Male
  Weight: 27.21 kg

DRUGS (4)
  1. QUILLIVANT XR [Suspect]
     Indication: ATTENTION DEFICIT/HYPERACTIVITY DISORDER
     Dosage: 20 MG, DAILY
     Route: 048
     Dates: start: 20131104, end: 201311
  2. QUILLIVANT XR [Suspect]
     Dosage: 30 MG, DAILY
     Route: 048
     Dates: start: 201311, end: 201311
  3. QUILLIVANT XR [Suspect]
     Dosage: 30MG IN THE MORNING AND 20MG IN THE AFTERNOON
     Route: 048
     Dates: start: 201311, end: 201311
  4. QUILLIVANT XR [Suspect]
     Dosage: 30 MG, 2X/DAY (6 ML IN AM AND 6 ML AFTER LUNCH)
     Dates: start: 20131118

REACTIONS (3)
  - Drug ineffective [Unknown]
  - Rebound effect [Recovering/Resolving]
  - Irritability [Unknown]
